FAERS Safety Report 7419101-9 (Version None)
Quarter: 2011Q2

REPORT INFORMATION
  Report Type: 
  Country: None (occurrence: None)
  Receive Date: 20110415
  Receipt Date: 20101026
  Transmission Date: 20111010
  Serious: Yes (Hospitalization, Other)
  Sender: FDA-Public Use
  Company Number: US-BAYER-201018239NA

PATIENT
  Age: 14 Year
  Sex: Female
  Weight: 68.027 kg

DRUGS (11)
  1. YAZ [Suspect]
     Indication: PREMENSTRUAL SYNDROME
  2. NON STEROID ANTI-INFLAMMATORY DRUGS [Concomitant]
     Dosage: UNK
     Dates: start: 20020101
  3. DOCUSATE SODIUM [Concomitant]
     Indication: CONSTIPATION
     Dosage: UNK UNK, PRN
     Dates: start: 20080326
  4. LITHIUM CARBON [Concomitant]
  5. HYDROCODONE BITARTRATE AND ACETAMINOPHEN [Concomitant]
     Indication: INFLAMMATION
     Dosage: 5 MG, UNK
     Dates: start: 20080321, end: 20080321
  6. YAZ [Suspect]
     Indication: CONTRACEPTION
     Dosage: UNK UNK, UNK
     Route: 048
     Dates: start: 20050101, end: 20080301
  7. TRIMETHOPRIM [Concomitant]
     Indication: INFECTION
     Dosage: 800 MG, BID
     Dates: start: 20080307, end: 20080312
  8. DICYCLOMINE [Concomitant]
  9. YAZ [Suspect]
     Indication: ACNE
  10. YAZ [Suspect]
  11. HYDROCODONE BITARTRATE AND ACETAMINOPHEN [Concomitant]
     Dosage: 5 MG, PRN
     Dates: start: 20080326, end: 20080326

REACTIONS (10)
  - ABDOMINAL PAIN [None]
  - NAUSEA [None]
  - CHOLELITHIASIS [None]
  - THROMBOSIS [None]
  - MUSCLE SPASMS [None]
  - HAEMORRHAGE [None]
  - BLOOD PRESSURE DECREASED [None]
  - ABDOMINAL PAIN UPPER [None]
  - CHOLECYSTITIS [None]
  - VOMITING [None]
